FAERS Safety Report 4628874-X (Version None)
Quarter: 2005Q2

REPORT INFORMATION
  Report Type: 
  Country: None (occurrence: None)
  Receive Date: 20050406
  Receipt Date: 20050321
  Transmission Date: 20051028
  Serious: Yes (Other)
  Sender: FDA-Public Use
  Company Number: MC200500290

PATIENT
  Age: 62 Year
  Sex: Male

DRUGS (1)
  1. ANGIOMAX [Suspect]
     Dosage: SEE IMAGE
     Route: 042
     Dates: start: 20050301, end: 20050301

REACTIONS (3)
  - CORONARY ARTERY DISSECTION [None]
  - ELECTROCARDIOGRAM ST SEGMENT ELEVATION [None]
  - POST PROCEDURAL PAIN [None]
